FAERS Safety Report 8826322 (Version 3)
Quarter: 2013Q1

REPORT INFORMATION
  Report Type: Spontaneous
  Country: CA (occurrence: CA)
  Receive Date: 20121005
  Receipt Date: 20130307
  Transmission Date: 20140127
  Serious: Yes (Hospitalization, Other)
  Sender: FDA-Public Use
  Company Number: CA-BRISTOL-MYERS SQUIBB COMPANY-17009481

PATIENT
  Age: 64 Year
  Sex: Female

DRUGS (6)
  1. SPRYCEL [Suspect]
     Indication: CHRONIC MYELOID LEUKAEMIA
     Route: 048
     Dates: start: 20110118
  2. VENTOLIN INHALER [Concomitant]
  3. FLOVENT [Concomitant]
     Dosage: INHALER
  4. REGLAN [Concomitant]
  5. FLOXAPEN [Concomitant]
  6. METOCLOPRAMIDE [Concomitant]

REACTIONS (4)
  - Emphysema [Unknown]
  - Pleural effusion [Recovered/Resolved]
  - Fall [Unknown]
  - Musculoskeletal discomfort [Unknown]
